FAERS Safety Report 14031816 (Version 2)
Quarter: 2018Q1

REPORT INFORMATION
  Report Type: Report from Study
  Country: CO (occurrence: CO)
  Receive Date: 20171002
  Receipt Date: 20180124
  Transmission Date: 20180508
  Serious: Yes (Hospitalization)
  Sender: FDA-Public Use
  Company Number: PHHY2017CO059482

PATIENT
  Age: 79 Year
  Sex: Female
  Weight: 42 kg

DRUGS (5)
  1. JAKAVI [Suspect]
     Active Substance: RUXOLITINIB
     Indication: PRIMARY MYELOFIBROSIS
     Dosage: 20 MG, QD (ONCE DAILY)
     Route: 048
     Dates: start: 20120514
  2. VERAPAMIL [Concomitant]
     Active Substance: VERAPAMIL HYDROCHLORIDE
     Indication: BLOOD PRESSURE INCREASED
     Route: 065
  3. METOPROLOL. [Suspect]
     Active Substance: METOPROLOL
     Indication: BLOOD PRESSURE INCREASED
     Route: 065
  4. LOSARTAN. [Suspect]
     Active Substance: LOSARTAN
     Indication: BLOOD PRESSURE INCREASED
     Route: 065
  5. JAKAVI [Suspect]
     Active Substance: RUXOLITINIB
     Dosage: 5 MG, QD (ONCE DAILY)
     Route: 048
     Dates: start: 20171103

REACTIONS (10)
  - Blood pressure increased [Unknown]
  - Abdominal pain [Unknown]
  - Wrong technique in product usage process [Unknown]
  - Pain [Unknown]
  - Weight decreased [Unknown]
  - Immune system disorder [Unknown]
  - Malaise [Unknown]
  - Splenitis [Unknown]
  - Pyrexia [Unknown]
  - Abdominal distension [Unknown]

NARRATIVE: CASE EVENT DATE: 20170404
